FAERS Safety Report 9887357 (Version 2)
Quarter: 2014Q1

REPORT INFORMATION
  Report Type: Report from Study
  Country: CA (occurrence: CA)
  Receive Date: 20140211
  Receipt Date: 20140211
  Transmission Date: 20141002
  Serious: Yes (Other)
  Sender: FDA-Public Use
  Company Number: CA-BRISTOL-MYERS SQUIBB COMPANY-19666726

PATIENT
  Age: 54 Year
  Sex: Male

DRUGS (5)
  1. ORENCIA [Suspect]
     Indication: RHEUMATOID ARTHRITIS
     Dosage: 1DF= 750 UNITS NOS?LAST INF ON 24SEP2013,21NOV2013,17DEC13?EXP:MAY16
     Dates: start: 20080725
  2. METFORMIN [Concomitant]
  3. GLICLAZIDE [Concomitant]
  4. PREDNISONE [Concomitant]
  5. ADVIL [Concomitant]

REACTIONS (5)
  - Carpal tunnel syndrome [Unknown]
  - Furuncle [Unknown]
  - Rash generalised [Unknown]
  - Nasopharyngitis [Unknown]
  - Pollakiuria [Unknown]
